FAERS Safety Report 10747329 (Version 1)
Quarter: 2015Q1

REPORT INFORMATION
  Report Type: Spontaneous
  Country: GR (occurrence: GR)
  Receive Date: 20150129
  Receipt Date: 20150129
  Transmission Date: 20150721
  Serious: Yes (Other)
  Sender: FDA-Public Use
  Company Number: GR-AMGEN-GRCSP2015007158

PATIENT
  Sex: Female

DRUGS (2)
  1. PROLIA [Suspect]
     Active Substance: DENOSUMAB
     Indication: OSTEOPOROSIS
     Dosage: 60 MG, Q6MO
     Route: 065
  2. ENBREL [Concomitant]
     Active Substance: ETANERCEPT

REACTIONS (3)
  - Neck surgery [Recovering/Resolving]
  - Herpes zoster [Recovering/Resolving]
  - Monoplegia [Recovering/Resolving]
